FAERS Safety Report 9248530 (Version 1)
Quarter: 2013Q1

REPORT INFORMATION
  Report Type: Spontaneous
  Country: US (occurrence: None)
  Receive Date: 20130305
  Receipt Date: 20130305
  Transmission Date: 20140127
  Serious: Yes (Hospitalization)
  Sender: FDA-Public Use
  Company Number: 163-21880-12092000

PATIENT
  Age: 84 Year
  Sex: Male

DRUGS (9)
  1. REVLIMID [Suspect]
     Indication: MYELODYSPLASTIC SYNDROME
     Dosage: 1 IN 1 D
     Route: 048
     Dates: start: 20120511
  2. PLAVIX (CLOPIDOGREL SULFATE) [Concomitant]
  3. ASA (ACETYLSALICYLIC ACID) [Concomitant]
  4. ATENOLOL (ATENOLOL) [Concomitant]
  5. LISINOPRIL (LISINOPRIL) [Concomitant]
  6. LIPITOR (ATORVASTATIN) [Concomitant]
  7. RANITIDINE (RANITIDINE) [Concomitant]
  8. PROCRIT [Concomitant]
  9. NSAIDS (NSAIDS) [Concomitant]

REACTIONS (2)
  - Diverticulum intestinal haemorrhagic [None]
  - Colitis ischaemic [None]
